FAERS Safety Report 9597054 (Version 2)
Quarter: 2013Q4

REPORT INFORMATION
  Report Type: Report from Study
  Country: NZ (occurrence: NZ)
  Receive Date: 20131004
  Receipt Date: 20131024
  Transmission Date: 20140711
  Serious: Yes (Hospitalization)
  Sender: FDA-Public Use
  Company Number: NZ-ABBVIE-13P-118-1154326-00

PATIENT
  Age: 52 Year
  Sex: Male

DRUGS (43)
  1. HUMIRA [Suspect]
     Indication: CROHN^S DISEASE
     Dosage: (1/2 OF THE 4TH SYRINGE OF 40 MG WASTED)
     Route: 058
     Dates: start: 20091009, end: 20091009
  2. HUMIRA [Suspect]
  3. HUMIRA [Suspect]
     Route: 058
     Dates: start: 20091023
  4. GABAPENTIN [Concomitant]
     Indication: ABDOMINAL PAIN
     Dosage: 300 TO 900 MG
     Dates: start: 20091027
  5. METHADONE [Concomitant]
     Indication: ABDOMINAL PAIN
     Dosage: 5 - 30 MG
     Dates: start: 20091029
  6. METHADONE [Concomitant]
     Indication: ABDOMINAL PAIN
     Dates: start: 20101220, end: 20101225
  7. METHADONE [Concomitant]
     Indication: PAIN
     Dosage: 5 - 15 MG
     Dates: start: 20101224, end: 20111012
  8. METHADONE [Concomitant]
     Dosage: 5 - 10 MG
     Dates: start: 20111013
  9. PARACETAMOL [Concomitant]
     Indication: ABDOMINAL PAIN
     Dates: start: 20091029
  10. PARACETAMOL [Concomitant]
     Indication: PAIN
  11. PREDNISONE [Concomitant]
     Indication: CROHN^S DISEASE
     Route: 048
     Dates: start: 20091029
  12. PREDNISONE [Concomitant]
     Indication: CROHN^S DISEASE
     Dates: start: 20101027, end: 20101205
  13. PREDNISONE [Concomitant]
     Dates: start: 20101219, end: 20101224
  14. PREDNISONE [Concomitant]
     Dates: start: 20101224, end: 20110128
  15. PREDNISONE [Concomitant]
     Dates: start: 20100128, end: 20100425
  16. PREDNISONE [Concomitant]
     Dates: start: 20100429, end: 20110413
  17. PREDNISONE [Concomitant]
     Dates: start: 20110413, end: 20110429
  18. PREDNISONE [Concomitant]
     Dates: start: 20110427, end: 20110701
  19. PREDNISONE [Concomitant]
     Dosage: DOSE TITRATION DONE EVERY 3 DAYS WEANED 5 MG EVERY 3 DAYS DOWN TO 10 MG ON 12 JUL 2011
     Dates: start: 20110701, end: 20110729
  20. PREDNISONE [Concomitant]
     Dates: start: 20110909, end: 20110912
  21. PREDNISONE [Concomitant]
     Dosage: DOSING TO TAPER 5 MG EVERY 5 DAYS DOWN TO 20 MG
     Dates: start: 20110912, end: 20111012
  22. PREDNISONE [Concomitant]
     Dosage: TAPER DOSE BY 2.5 MG WEEKLY
     Dates: start: 20111013, end: 20120208
  23. PREDNISONE [Concomitant]
     Dosage: HAD BEEN REDUCING BY 1 MG MONTHLY
     Dates: start: 20120209, end: 20121013
  24. PREDNISONE [Concomitant]
     Dates: start: 20121014, end: 20121218
  25. PREDNISONE [Concomitant]
     Dates: start: 20121219, end: 20130223
  26. PREDNISONE [Concomitant]
     Dates: start: 20130224
  27. PREDNISONE [Concomitant]
     Dates: start: 20130618, end: 20130620
  28. PREDNISONE [Concomitant]
     Dates: start: 20130621, end: 20130704
  29. PREDNISONE [Concomitant]
     Dosage: 10 - 20 MG
     Route: 048
     Dates: start: 20130705
  30. CATAPRESS [Concomitant]
     Indication: HYPERTENSION
     Dosage: PATCH
     Route: 061
     Dates: start: 20091027
  31. ENSURE [Concomitant]
     Indication: NUTRITIONAL SUPPLEMENTATION
     Dates: start: 20091029
  32. LACTULOSE [Concomitant]
     Indication: CONSTIPATION PROPHYLAXIS
     Dosage: 20 - 40 ML
     Dates: start: 20091029
  33. SALBUTAMOL [Concomitant]
     Indication: ASTHMA
     Dosage: 25 MG TO 5 MG 2 DAY/ PRN
     Dates: start: 20101219, end: 20101224
  34. SALBUTAMOL [Concomitant]
     Indication: EMPHYSEMA
     Dosage: 100 - 200 MCG BID
     Dates: start: 20101223
  35. SALBUTAMOL [Concomitant]
     Indication: LOWER RESPIRATORY TRACT INFECTION
     Dosage: STAT
     Dates: start: 20121001, end: 20121001
  36. CHOLECALCIFEROL [Concomitant]
     Indication: OSTEOPOROSIS PROPHYLAXIS
     Dates: start: 20101112
  37. SEVREDOL [Concomitant]
     Indication: ABDOMINAL PAIN
     Dosage: 10 - 20 MG QID PRN
     Dates: start: 20100723, end: 20110705
  38. MORPHINE SULFATE [Concomitant]
     Indication: MUSCULOSKELETAL CHEST PAIN
     Dates: start: 20110705
  39. MORPHINE SULFATE [Concomitant]
     Indication: ABDOMINAL PAIN
  40. METOCLOPRAMIDE HYDROCHLORIDE [Concomitant]
     Indication: NAUSEA
     Dosage: 8 HOURLY TO QID PRN
     Dates: start: 20110701
  41. CODEINE PHOSPHATE [Concomitant]
     Indication: CHEST PAIN
     Dosage: 30 - 60 MG 4-6 HOURLY
     Dates: start: 20120126
  42. CODEINE PHOSPHATE [Concomitant]
     Indication: COUGH
  43. VITAMIN D [Concomitant]
     Indication: VITAMIN SUPPLEMENTATION
     Dates: start: 20130123

REACTIONS (1)
  - Infective exacerbation of chronic obstructive airways disease [Recovered/Resolved]
